FAERS Safety Report 19645796 (Version 1)
Quarter: 2021Q3

REPORT INFORMATION
  Report Type: Other
  Country: IT (occurrence: IT)
  Receive Date: 20210802
  Receipt Date: 20210802
  Transmission Date: 20211014
  Serious: Yes (Hospitalization)
  Sender: FDA-Public Use
  Company Number: IT-ROCHE-2881328

PATIENT

DRUGS (1)
  1. RITUXIMAB. [Suspect]
     Active Substance: RITUXIMAB
     Indication: DIFFUSE LARGE B-CELL LYMPHOMA
     Dosage: SIX (6) DOSES
     Route: 065

REACTIONS (4)
  - Symptom recurrence [Recovered/Resolved]
  - Post-acute COVID-19 syndrome [Recovered/Resolved]
  - Immunodeficiency [Unknown]
  - COVID-19 pneumonia [Recovered/Resolved]
